FAERS Safety Report 24388133 (Version 1)
Quarter: 2024Q4

REPORT INFORMATION
  Report Type: Spontaneous
  Country: CA (occurrence: CA)
  Receive Date: 20241002
  Receipt Date: 20241002
  Transmission Date: 20250114
  Serious: Yes (Other)
  Sender: CELLTRION
  Company Number: CA-PFIZER INC-202400263254

PATIENT

DRUGS (8)
  1. INFLECTRA [Suspect]
     Active Substance: INFLIXIMAB-DYYB
     Indication: Rheumatoid arthritis
     Dosage: 700 MG, EVERY 6 WEEKS
     Route: 042
     Dates: start: 20240812
  2. INFLECTRA [Suspect]
     Active Substance: INFLIXIMAB-DYYB
     Dosage: 700 MG, EVERY 6 WEEKS
     Route: 042
     Dates: start: 20240812
  3. INFLECTRA [Suspect]
     Active Substance: INFLIXIMAB-DYYB
     Dosage: 700 MG, EVERY 6 WEEKS
     Route: 042
     Dates: start: 20240923
  4. HYDROXYCHLOROQUINE [Concomitant]
     Active Substance: HYDROXYCHLOROQUINE
     Dosage: 400 MG, 1X/DAY
     Route: 048
  5. METHOTREXATE [Concomitant]
     Active Substance: METHOTREXATE
     Dosage: 7.5 MG, WEEKLY
     Route: 048
  6. METHOTREXATE [Concomitant]
     Active Substance: METHOTREXATE
     Dosage: 25 MG (DOSE - 25 MG AND HIGHER ROUTE - SC/PO THERAPY DISCONTINUED)
     Route: 058
  7. TYLENOL WITH CODEINE [Concomitant]
     Active Substance: ACETAMINOPHEN\CODEINE PHOSPHATE
     Dosage: 1 DF, AS NEEDED,PRN, DOSAGE INFO UNK
     Route: 065
  8. WARFARIN [Concomitant]
     Active Substance: WARFARIN
     Dosage: 12 MG, 1X/DAY
     Route: 065
     Dates: start: 201805

REACTIONS (6)
  - Pain in extremity [Recovered/Resolved]
  - Mobility decreased [Recovered/Resolved]
  - Infusion site swelling [Recovered/Resolved]
  - Contusion [Recovered/Resolved]
  - Pain [Recovered/Resolved]
  - Vein disorder [Recovered/Resolved]

NARRATIVE: CASE EVENT DATE: 20240101
